FAERS Safety Report 11395006 (Version 1)
Quarter: 2015Q3

REPORT INFORMATION
  Report Type: Spontaneous
  Country: US (occurrence: None)
  Receive Date: 20150817
  Receipt Date: 20150817
  Transmission Date: 20151125
  Serious: Yes (Other)
  Sender: FDA-Public Use
  Company Number: None

PATIENT
  Age: 77 Year
  Sex: Female
  Weight: 68.04 kg

DRUGS (5)
  1. NEURONTIN [Concomitant]
     Active Substance: GABAPENTIN
  2. FASLODEX [Suspect]
     Active Substance: FULVESTRANT
     Indication: BREAST CANCER
     Dosage: 2 SYRINGES  MONTHLY INTRAMUSCULAR
     Route: 030
     Dates: start: 20141203
  3. TAGAMET [Concomitant]
     Active Substance: CIMETIDINE
  4. NEXIUM [Concomitant]
     Active Substance: ESOMEPRAZOLE MAGNESIUM
  5. ORPHENADRINE [Concomitant]
     Active Substance: ORPHENADRINE

REACTIONS (6)
  - Bone pain [None]
  - Nausea [None]
  - Back pain [None]
  - Pain in extremity [None]
  - Musculoskeletal pain [None]
  - Decreased appetite [None]

NARRATIVE: CASE EVENT DATE: 20150728
